FAERS Safety Report 4309396-2 (Version None)
Quarter: 2004Q1

REPORT INFORMATION
  Report Type: 
  Country: None (occurrence: None)
  Receive Date: 20040301
  Receipt Date: 20040218
  Transmission Date: 20041129
  Serious: Yes (Hospitalization)
  Sender: FDA-Public Use
  Company Number: US-JNJFOC-20040204428

PATIENT
  Age: 44 Year
  Sex: Female

DRUGS (8)
  1. DURAGESIC [Suspect]
     Indication: PAIN
     Dosage: SEE IMAGE
     Route: 062
     Dates: start: 20031001, end: 20031201
  2. DURAGESIC [Suspect]
     Indication: PAIN
     Dosage: SEE IMAGE
     Route: 062
     Dates: start: 20031201, end: 20040201
  3. DURAGESIC [Suspect]
     Indication: PAIN
     Dosage: SEE IMAGE
     Route: 062
     Dates: start: 20040201
  4. LEVOXYL [Concomitant]
  5. PRILOSEC [Concomitant]
  6. ZELNORM [Concomitant]
  7. CELEXA [Concomitant]
  8. MIRALAX [Concomitant]

REACTIONS (4)
  - CONVULSION [None]
  - COORDINATION ABNORMAL [None]
  - SELF-MEDICATION [None]
  - TREATMENT NONCOMPLIANCE [None]
